FAERS Safety Report 8090109-6 (Version None)
Quarter: 2012Q1

REPORT INFORMATION
  Report Type: 
  Country: None (occurrence: None)
  Receive Date: 20120129
  Receipt Date: 20111017
  Transmission Date: 20120608
  Serious: Yes (Hospitalization)
  Sender: FDA-Public Use
  Company Number: US-ABBOTT-11P-163-0866384-00

PATIENT
  Age: 60 Year
  Sex: Female

DRUGS (4)
  1. EFFEXOR [Concomitant]
     Indication: PRODUCT USED FOR UNKNOWN INDICATION
  2. FOLIC ACID [Concomitant]
     Indication: PRODUCT USED FOR UNKNOWN INDICATION
  3. METHOTREXATE [Concomitant]
     Indication: PRODUCT USED FOR UNKNOWN INDICATION
     Dosage: 5 TABLETS WEEKLY
  4. HUMIRA [Suspect]
     Indication: PSORIATIC ARTHROPATHY
     Dates: end: 20110922

REACTIONS (9)
  - PSORIASIS [None]
  - SEPSIS [None]
  - URINARY TRACT INFECTION [None]
  - DYSURIA [None]
  - JOINT STIFFNESS [None]
  - STAPHYLOCOCCAL INFECTION [None]
  - KIDNEY INFECTION [None]
  - PYREXIA [None]
  - PAIN [None]
